FAERS Safety Report 7868081-0 (Version None)
Quarter: 2011Q4

REPORT INFORMATION
  Report Type: 
  Country: None (occurrence: None)
  Receive Date: 20111028
  Receipt Date: 20111026
  Transmission Date: 20120403
  Serious: Yes (Hospitalization)
  Sender: FDA-Public Use
  Company Number: FR-BAYER-2011-104441

PATIENT
  Age: 56 Year
  Sex: Male

DRUGS (2)
  1. NEXAVAR [Suspect]
     Indication: GASTROINTESTINAL NEOPLASM
     Dosage: UNK
     Dates: end: 20110831
  2. KEPPRA [Concomitant]

REACTIONS (3)
  - CONVULSION [None]
  - HYPERTENSION [None]
  - LEUKOENCEPHALOPATHY [None]
